FAERS Safety Report 23282744 (Version 2)
Quarter: 2024Q1

REPORT INFORMATION
  Report Type: Spontaneous
  Country: US (occurrence: US)
  Receive Date: 20231211
  Receipt Date: 20240329
  Transmission Date: 20240410
  Serious: No
  Sender: FDA-Public Use
  Company Number: US-BRISTOL-MYERS SQUIBB COMPANY-2023-178534

PATIENT
  Age: 68 Year
  Sex: Male
  Weight: 75.75 kg

DRUGS (2)
  1. REVLIMID [Suspect]
     Active Substance: LENALIDOMIDE
     Indication: Plasma cell myeloma
     Route: 048
  2. REVLIMID [Suspect]
     Active Substance: LENALIDOMIDE
     Dosage: FREQ: 3WKSON/1WKOFF
     Route: 048

REACTIONS (5)
  - Peripheral swelling [Recovering/Resolving]
  - Sensitive skin [Recovering/Resolving]
  - Off label use [Unknown]
  - Arthralgia [Unknown]
  - Blepharitis [Unknown]
